FAERS Safety Report 9241584 (Version 2)
Quarter: 2013Q2

REPORT INFORMATION
  Report Type: Spontaneous
  Country: JP (occurrence: JP)
  Receive Date: 20130419
  Receipt Date: 20130620
  Transmission Date: 20140414
  Serious: Yes (Hospitalization)
  Sender: FDA-Public Use
  Company Number: JP-009507513-1304JPN008059

PATIENT
  Age: 59 Year
  Sex: Male
  Weight: 109 kg

DRUGS (11)
  1. REBETOL [Suspect]
     Indication: CHRONIC HEPATITIS C
     Dosage: 1000 MG, QD
     Route: 048
     Dates: start: 20130208, end: 20130423
  2. REBETOL [Suspect]
     Dosage: 600 MG, QD
     Route: 048
     Dates: start: 20130424
  3. PEGINTRON [Suspect]
     Indication: CHRONIC HEPATITIS C
     Dosage: 1.5 MICROGRAM PER KILOGRAM, QW
     Route: 058
     Dates: start: 20130208
  4. TELAVIC [Suspect]
     Indication: CHRONIC HEPATITIS C
     Dosage: 2250MG, QD
     Route: 048
     Dates: start: 20120208, end: 20120224
  5. TELAVIC [Suspect]
     Dosage: 1500MG, QD
     Route: 048
     Dates: start: 20120225, end: 20120423
  6. TELAVIC [Suspect]
     Dosage: 750 MG, QD
     Route: 048
     Dates: start: 20130424
  7. NORVASC [Concomitant]
     Dosage: 5 MG, QD
     Route: 048
  8. ECARD HD [Concomitant]
     Dosage: 1 DF, QD
     Route: 048
     Dates: end: 20130307
  9. METHYCOBAL [Concomitant]
     Indication: BACK PAIN
     Dosage: 1500 MG,QD
     Route: 048
     Dates: start: 20130209
  10. NEWTOLIDE [Concomitant]
     Dosage: 6.25 MG, QD
     Route: 048
     Dates: start: 20130308
  11. BLOPRESS [Concomitant]
     Dosage: 8 MG, QD
     Route: 048
     Dates: start: 20130308

REACTIONS (2)
  - Renal impairment [Not Recovered/Not Resolved]
  - Dysgeusia [Not Recovered/Not Resolved]
